FAERS Safety Report 6031768-9 (Version None)
Quarter: 2009Q1

REPORT INFORMATION
  Report Type: 
  Country: None (occurrence: None)
  Receive Date: 20090108
  Receipt Date: 20081230
  Transmission Date: 20090719
  Serious: Yes (Life-Threatening)
  Sender: FDA-Public Use
  Company Number: US-MERCK-0408USA01517

PATIENT
  Age: 51 Year
  Sex: Female

DRUGS (5)
  1. FOSAMAX [Suspect]
     Indication: OSTEOPOROSIS
     Route: 048
     Dates: start: 19980101
  2. FOSAMAX [Suspect]
     Route: 048
     Dates: end: 20070101
  3. FOSAMAX [Suspect]
     Route: 048
     Dates: start: 19970101
  4. CALCIUM (UNSPECIFIED) [Concomitant]
     Route: 065
  5. VITAMIN E [Concomitant]
     Route: 065

REACTIONS (7)
  - HEADACHE [None]
  - HERPES ZOSTER [None]
  - MIGRAINE [None]
  - OVERDOSE [None]
  - POLYCYTHAEMIA VERA [None]
  - VISION BLURRED [None]
  - WRONG TECHNIQUE IN DRUG USAGE PROCESS [None]
